FAERS Safety Report 4809243-6 (Version None)
Quarter: 2005Q4

REPORT INFORMATION
  Report Type: 
  Country: None (occurrence: None)
  Receive Date: 20051021
  Receipt Date: 20020702
  Transmission Date: 20060501
  Serious: No
  Sender: FDA-Public Use
  Company Number: GBS020710979

PATIENT
  Age: 91 Year
  Sex: Female

DRUGS (5)
  1. ZYPREXA [Suspect]
     Indication: AGGRESSION
     Dates: start: 20020522, end: 20020613
  2. ZYPREXA [Suspect]
     Indication: AGITATION
     Dates: start: 20020522, end: 20020613
  3. ASPIRIN [Concomitant]
  4. MADOPAR [Concomitant]
  5. CODEINE PHOSPHATE AND ACETAMINOPHEN [Concomitant]

REACTIONS (2)
  - NEUTROPHIL COUNT DECREASED [None]
  - WHITE BLOOD CELL COUNT DECREASED [None]
